FAERS Safety Report 13348812 (Version 1)
Quarter: 2017Q1

REPORT INFORMATION
  Report Type: Spontaneous
  Country: US (occurrence: US)
  Receive Date: 20170320
  Receipt Date: 20170320
  Transmission Date: 20170428
  Serious: No
  Sender: FDA-Public Use
  Company Number: US-TEVA-725962ACC

PATIENT
  Age: 95 Year
  Sex: Female

DRUGS (1)
  1. NORTRIPTYLINE HYDROCHLORIDE CAPSULES [Suspect]
     Active Substance: NORTRIPTYLINE HYDROCHLORIDE
     Indication: VERTIGO
     Dosage: 25 MILLIGRAM DAILY;

REACTIONS (1)
  - Dizziness [Unknown]
